FAERS Safety Report 8231117-1 (Version None)
Quarter: 2012Q1

REPORT INFORMATION
  Report Type: 
  Country: None (occurrence: None)
  Receive Date: 20120322
  Receipt Date: 20120322
  Transmission Date: 20120608
  Serious: No
  Sender: FDA-Public Use
  Company Number: None

PATIENT
  Age: 34 Year
  Sex: Female
  Weight: 63.049 kg

DRUGS (1)
  1. CRESTOR [Suspect]
     Indication: TYPE IIA HYPERLIPIDAEMIA
     Dosage: 20.0 MG
     Route: 048

REACTIONS (14)
  - MUSCLE TWITCHING [None]
  - MUSCULAR WEAKNESS [None]
  - DIZZINESS [None]
  - DISTURBANCE IN ATTENTION [None]
  - ASTHENIA [None]
  - COGNITIVE DISORDER [None]
  - CHEST DISCOMFORT [None]
  - AMNESIA [None]
  - ABDOMINAL PAIN LOWER [None]
  - SOMNOLENCE [None]
  - FATIGUE [None]
  - FEELING ABNORMAL [None]
  - INSOMNIA [None]
  - HOT FLUSH [None]
